FAERS Safety Report 5491993-2 (Version None)
Quarter: 2007Q4

REPORT INFORMATION
  Report Type: 
  Country: None (occurrence: None)
  Receive Date: 20071022
  Receipt Date: 20071016
  Transmission Date: 20080405
  Serious: Yes (Hospitalization)
  Sender: FDA-Public Use
  Company Number: B0485680A

PATIENT
  Age: 66 Year
  Sex: Male
  Weight: 56 kg

DRUGS (11)
  1. VALTREX [Suspect]
     Indication: HERPES ZOSTER
     Dosage: 1000MG THREE TIMES PER DAY
     Route: 048
     Dates: start: 20070718, end: 20070720
  2. PRECIPITATED CALCIUM CARBONATE [Concomitant]
     Dosage: 4.5G PER DAY
     Route: 048
  3. RENAGEL [Concomitant]
     Route: 048
  4. ARTIST [Concomitant]
     Indication: HYPERTENSION
     Dosage: 10MG PER DAY
     Route: 048
  5. ASPIRIN [Concomitant]
     Indication: ANGINA PECTORIS
     Dosage: 200MG PER DAY
     Route: 048
  6. ZYLORIC [Concomitant]
     Dosage: 100MG PER DAY
     Route: 048
  7. LANSOPRAZOLE [Concomitant]
     Dosage: 15MG PER DAY
     Route: 048
  8. ANPLAG [Concomitant]
     Indication: ARTERIOSCLEROSIS OBLITERANS
     Dosage: 300MG PER DAY
     Route: 048
  9. UNKNOWN DRUG [Concomitant]
     Indication: ANGINA PECTORIS
     Dosage: 15MG PER DAY
     Route: 048
  10. MARZULENE-S [Concomitant]
     Indication: GASTRITIS
     Dosage: 4.5G PER DAY
     Route: 048
  11. WARFARIN SODIUM [Concomitant]
     Indication: ATRIAL FIBRILLATION
     Dosage: 1.5MG PER DAY
     Route: 048

REACTIONS (3)
  - AMNESIA [None]
  - DIZZINESS [None]
  - ENCEPHALOPATHY [None]
